FAERS Safety Report 6974312-1 (Version None)
Quarter: 2010Q3

REPORT INFORMATION
  Report Type: 
  Country: None (occurrence: None)
  Receive Date: 20100909
  Receipt Date: 20100827
  Transmission Date: 20110219
  Serious: Yes (Other)
  Sender: FDA-Public Use
  Company Number: PHFR2010GB01299

PATIENT
  Sex: Female
  Weight: 55.3 kg

DRUGS (8)
  1. CLOZARIL [Suspect]
     Indication: SCHIZOPHRENIA
     Dosage: UNK
     Route: 048
     Dates: start: 20040330
  2. CLOZARIL [Suspect]
     Dosage: 300 MG, QD
     Route: 048
  3. LEVOTHYROXINE SODIUM [Concomitant]
     Dosage: 100 UG, QD
  4. SIMVASTATIN [Concomitant]
     Dosage: 40 MG, QD
     Route: 048
  5. NULYTELY [Concomitant]
  6. LACTULOSE [Concomitant]
     Dosage: UNK
  7. OMEPRAZEN [Concomitant]
     Dosage: 20 MG, QD
  8. VENTILAN [Concomitant]
     Dosage: UNK

REACTIONS (9)
  - ANTIPSYCHOTIC DRUG LEVEL INCREASED [None]
  - DYSARTHRIA [None]
  - HYPERLIPIDAEMIA [None]
  - HYPOTHYROIDISM [None]
  - MALAISE [None]
  - OVERDOSE [None]
  - SEDATION [None]
  - SOMNOLENCE [None]
  - URINARY TRACT INFECTION [None]
